FAERS Safety Report 9033523 (Version 1)
Quarter: 2013Q1

REPORT INFORMATION
  Report Type: Spontaneous
  Country: US (occurrence: US)
  Receive Date: 20130128
  Receipt Date: 20130128
  Transmission Date: 20140127
  Serious: No
  Sender: FDA-Public Use
  Company Number: US-ASTRAZENECA-2013SE01051

PATIENT
  Age: 55 Year
  Sex: Female
  Weight: 88.5 kg

DRUGS (3)
  1. NEXIUM [Suspect]
     Indication: REFLUX LARYNGITIS
     Route: 048
     Dates: start: 2010
  2. NEXIUM [Suspect]
     Indication: REFLUX LARYNGITIS
     Route: 048
     Dates: start: 20130103
  3. ZOLOFT [Concomitant]
     Indication: DEPRESSION

REACTIONS (4)
  - Dysphonia [Unknown]
  - Gastrooesophageal reflux disease [Unknown]
  - Drug dose omission [Unknown]
  - Intentional drug misuse [Unknown]
